FAERS Safety Report 5053071-6 (Version None)
Quarter: 2006Q3

REPORT INFORMATION
  Report Type: 
  Country: None (occurrence: None)
  Receive Date: 20060712
  Receipt Date: 20060629
  Transmission Date: 20061208
  Serious: Yes (Death, Other)
  Sender: FDA-Public Use
  Company Number: 2006082471

PATIENT
  Sex: 0

DRUGS (2)
  1. GEODON [Suspect]
     Dosage: 20 MG, INTRAMUSCULAR
     Route: 030
  2. ACETAMINOPHEN [Suspect]

REACTIONS (2)
  - AGITATION [None]
  - OVERDOSE [None]
